FAERS Safety Report 8890176 (Version 1)
Quarter: 2012Q4

REPORT INFORMATION
  Report Type: Spontaneous
  Country: US (occurrence: None)
  Receive Date: 20121105
  Receipt Date: 20121105
  Transmission Date: 20130627
  Serious: Yes (Disabling)
  Sender: FDA-Public Use
  Company Number: None

PATIENT
  Age: 42 Year
  Sex: Female
  Weight: 58.97 kg

DRUGS (4)
  1. KLONOPIN [Suspect]
     Dosage: .5MG  AS NEEDED-  po
     Route: 048
     Dates: start: 20090206, end: 20100329
  2. KLONOPIN [Suspect]
     Dosage: .5MG  AS NEEDED-  po
     Route: 048
     Dates: start: 20090206, end: 20100329
  3. KLONOPIN [Suspect]
     Dates: start: 20120215, end: 20120329
  4. KLONOPIN [Suspect]
     Dates: start: 20120215, end: 20120329

REACTIONS (3)
  - Drug dependence [None]
  - Abdominal pain [None]
  - Product quality issue [None]
